FAERS Safety Report 8116319-7 (Version None)
Quarter: 2012Q1

REPORT INFORMATION
  Report Type: 
  Country: None (occurrence: None)
  Receive Date: 20120206
  Receipt Date: 20120202
  Transmission Date: 20120608
  Serious: Yes (Hospitalization)
  Sender: FDA-Public Use
  Company Number: US-GLAXOSMITHKLINE-A0913482A

PATIENT
  Age: 59 Year
  Sex: Male

DRUGS (8)
  1. LANTUS [Concomitant]
  2. LISINOPRIL [Concomitant]
  3. LOPRESSOR [Concomitant]
  4. GLYBURIDE [Concomitant]
  5. AVODART [Concomitant]
  6. AVANDIA [Suspect]
     Indication: DIABETES MELLITUS
     Dosage: 4MG TWICE PER DAY
     Route: 048
     Dates: start: 20060201, end: 20100601
  7. METFORMIN HCL [Concomitant]
  8. ZOCOR [Concomitant]

REACTIONS (4)
  - CARDIOVASCULAR DISORDER [None]
  - CARDIAC DISORDER [None]
  - PERIPHERAL VASCULAR DISORDER [None]
  - CORONARY ARTERY DISEASE [None]
